FAERS Safety Report 23821702 (Version 1)
Quarter: 2024Q2

REPORT INFORMATION
  Report Type: Spontaneous
  Country: PL (occurrence: PL)
  Receive Date: 20240506
  Receipt Date: 20240506
  Transmission Date: 20240717
  Serious: Yes (Death, Other)
  Sender: FDA-Public Use
  Company Number: PL-002147023-NVSC2024PL091635

PATIENT
  Age: 67 Year
  Sex: Female

DRUGS (2)
  1. RIBOCICLIB [Suspect]
     Active Substance: RIBOCICLIB
     Indication: Product used for unknown indication
     Dosage: UNK
     Route: 065
  2. PREDNISONE [Suspect]
     Active Substance: PREDNISONE
     Indication: Product used for unknown indication
     Dosage: UNK
     Route: 065

REACTIONS (4)
  - Myelodysplastic syndrome [Fatal]
  - Thrombocytopenia [Unknown]
  - Skin lesion [Unknown]
  - Acarodermatitis [Unknown]

NARRATIVE: CASE EVENT DATE: 20230801
